FAERS Safety Report 15284618 (Version 1)
Quarter: 2018Q3

REPORT INFORMATION
  Report Type: Spontaneous
  Country: US (occurrence: US)
  Receive Date: 20180801
  Receipt Date: 20180801
  Transmission Date: 20181010
  Serious: No
  Sender: FDA-Public Use
  Company Number: None

PATIENT
  Sex: Male

DRUGS (18)
  1. REVLIMID [Concomitant]
     Active Substance: LENALIDOMIDE
  2. NYSTATIN. [Concomitant]
     Active Substance: NYSTATIN
  3. WARFARIN [Concomitant]
     Active Substance: WARFARIN
  4. VITAMIN D3 [Concomitant]
     Active Substance: CHOLECALCIFEROL
  5. RANITIDINE. [Concomitant]
     Active Substance: RANITIDINE
  6. BACLOFEN. [Concomitant]
     Active Substance: BACLOFEN
  7. CLOTRIMAZOLE LOZ [Concomitant]
  8. METFORMIN [Concomitant]
     Active Substance: METFORMIN HYDROCHLORIDE
  9. CRESTOR [Concomitant]
     Active Substance: ROSUVASTATIN CALCIUM
  10. NINLARO [Suspect]
     Active Substance: IXAZOMIB CITRATE
     Indication: PLASMA CELL MYELOMA
     Route: 048
     Dates: start: 20180413
  11. ZOLEDRONIC [Concomitant]
     Active Substance: ZOLEDRONIC ACID
  12. OSCAL [Concomitant]
     Active Substance: CALCIUM CARBONATE
  13. ACYCLOVIR. [Concomitant]
     Active Substance: ACYCLOVIR
  14. COLESTIPOL [Concomitant]
     Active Substance: COLESTIPOL
  15. ASPIRIN. [Concomitant]
     Active Substance: ASPIRIN
  16. NEUPOGEN [Concomitant]
     Active Substance: FILGRASTIM
  17. TYLENOL [Concomitant]
     Active Substance: ACETAMINOPHEN
  18. DEXAMETHASON [Concomitant]
     Active Substance: DEXAMETHASONE

REACTIONS (1)
  - Haemoglobin decreased [None]
